FAERS Safety Report 13568711 (Version 2)
Quarter: 2017Q2

REPORT INFORMATION
  Report Type: Spontaneous
  Country: DE (occurrence: DE)
  Receive Date: 20170522
  Receipt Date: 20170526
  Transmission Date: 20170830
  Serious: Yes (Death, Life-Threatening, Other)
  Sender: FDA-Public Use
  Company Number: DE-TEVA-771761GER

PATIENT
  Age: 75 Year
  Sex: Male

DRUGS (2)
  1. MEFLOQUINE [Suspect]
     Active Substance: MEFLOQUINE
     Indication: PROGRESSIVE MULTIFOCAL LEUKOENCEPHALOPATHY
     Dosage: 250 MILLIGRAM DAILY;
     Route: 048
     Dates: start: 2015, end: 2015
  2. MIRTAZAPINE. [Suspect]
     Active Substance: MIRTAZAPINE
     Indication: PROGRESSIVE MULTIFOCAL LEUKOENCEPHALOPATHY
     Dosage: 60 MILLIGRAM DAILY;
     Route: 048
     Dates: start: 2015

REACTIONS (2)
  - Drug ineffective [Unknown]
  - Condition aggravated [Fatal]
